FAERS Safety Report 6844411-3 (Version None)
Quarter: 2010Q3

REPORT INFORMATION
  Report Type: 
  Country: None (occurrence: None)
  Receive Date: 20100715
  Receipt Date: 20100705
  Transmission Date: 20110219
  Serious: Yes (Death, Hospitalization, Other)
  Sender: FDA-Public Use
  Company Number: JP-JNJFOC-20100703507

PATIENT
  Age: 66 Year
  Sex: Female

DRUGS (2)
  1. CRAVIT [Suspect]
     Indication: LYMPH NODE ABSCESS
     Route: 048
  2. STEROIDS NOS [Suspect]
     Indication: ASTHMA
     Route: 048

REACTIONS (4)
  - ASTHMA [None]
  - ILEUS PARALYTIC [None]
  - METABOLIC ACIDOSIS [None]
  - PSEUDOMEMBRANOUS COLITIS [None]
